FAERS Safety Report 11741791 (Version 1)
Quarter: 2015Q4

REPORT INFORMATION
  Report Type: Spontaneous
  Country: CN (occurrence: CN)
  Receive Date: 20151116
  Receipt Date: 20151116
  Transmission Date: 20160304
  Serious: Yes (Life-Threatening, Hospitalization, Other)
  Sender: FDA-Public Use
  Company Number: CN-ACTAVIS-2015-24365

PATIENT
  Age: 43 Year
  Sex: Male

DRUGS (5)
  1. OFLOXACIN. [Concomitant]
     Active Substance: OFLOXACIN
     Indication: MENINGITIS TUBERCULOUS
     Dosage: UNK
     Route: 065
  2. ETHAMBUTOL [Concomitant]
     Active Substance: ETHAMBUTOL HYDROCHLORIDE
     Indication: MENINGITIS TUBERCULOUS
     Dosage: UNK
     Route: 065
     Dates: start: 201201, end: 201203
  3. ISONIAZID. [Suspect]
     Active Substance: ISONIAZID
     Indication: MENINGITIS TUBERCULOUS
     Dosage: UNK
     Route: 065
     Dates: start: 201201
  4. RIFAMPICIN (UNKNOWN) [Suspect]
     Active Substance: RIFAMPIN
     Indication: MENINGITIS TUBERCULOUS
     Dosage: UNK
     Route: 065
     Dates: start: 201201
  5. PYRAZINAMIDE. [Concomitant]
     Active Substance: PYRAZINAMIDE
     Indication: MENINGITIS TUBERCULOUS
     Dosage: UNK
     Route: 065
     Dates: start: 201201

REACTIONS (3)
  - Cardiac arrest [Recovered/Resolved]
  - Hepatic function abnormal [Unknown]
  - Drug reaction with eosinophilia and systemic symptoms [Recovered/Resolved]
